FAERS Safety Report 6056264-4 (Version None)
Quarter: 2009Q1

REPORT INFORMATION
  Report Type: 
  Country: None (occurrence: None)
  Receive Date: 20090129
  Receipt Date: 20090114
  Transmission Date: 20090719
  Serious: Yes (Death, Hospitalization)
  Sender: FDA-Public Use
  Company Number: FR-BAYER-200911663GPV

PATIENT
  Age: 75 Year
  Sex: Male

DRUGS (1)
  1. REFLUDAN [Suspect]
     Indication: ANTICOAGULANT THERAPY
     Route: 042

REACTIONS (4)
  - CARDIO-RESPIRATORY ARREST [None]
  - CATHETER THROMBOSIS [None]
  - CEREBRAL INFARCTION [None]
  - ISCHAEMIC STROKE [None]
